FAERS Safety Report 5131452-X (Version None)
Quarter: 2006Q4

REPORT INFORMATION
  Report Type: 
  Country: None (occurrence: None)
  Receive Date: 20061016
  Receipt Date: 20061002
  Transmission Date: 20070319
  Serious: Yes (Other)
  Sender: FDA-Public Use
  Company Number: HQWYE084413AUG03

PATIENT
  Age: 55 Year
  Sex: Female
  Weight: 68.1 kg

DRUGS (4)
  1. PREMPRO [Suspect]
     Indication: HORMONE REPLACEMENT THERAPY
     Dosage: ORAL
     Route: 048
     Dates: start: 19970701, end: 19990101
  2. OGEN [Suspect]
     Dates: start: 19980401, end: 19990901
  3. PROVERA [Suspect]
     Dates: start: 19990401, end: 19990901
  4. PROZAC [Concomitant]

REACTIONS (14)
  - ARTERIOSCLEROSIS [None]
  - ASTHENIA [None]
  - BONE DENSITY DECREASED [None]
  - BREAST CANCER FEMALE [None]
  - BREAST CANCER METASTATIC [None]
  - BREAST CYST [None]
  - HAEMATOCRIT DECREASED [None]
  - INTERVERTEBRAL DISC SPACE NARROWING [None]
  - METASTASES TO LYMPH NODES [None]
  - NAUSEA [None]
  - OESTROGEN RECEPTOR ASSAY POSITIVE [None]
  - OSTEOARTHRITIS [None]
  - PROGESTERONE RECEPTOR ASSAY POSITIVE [None]
  - RADIATION PNEUMONITIS [None]
